FAERS Safety Report 26168181 (Version 1)
Quarter: 2025Q4

REPORT INFORMATION
  Report Type: Other
  Country: CA (occurrence: CA)
  Receive Date: 20251217
  Receipt Date: 20251217
  Transmission Date: 20260117
  Serious: Yes (Death, Life-Threatening, Hospitalization, Disabling, Congenital Anomaly, Other)
  Sender: BIOCON
  Company Number: CA-BIOCON BIOLOGICS LIMITED-BBL2025006840

PATIENT

DRUGS (21)
  1. ADALIMUMAB [Suspect]
     Active Substance: ADALIMUMAB
     Indication: Rheumatoid arthritis
     Dosage: UNK (SOLUTION FOR INJECTION)
     Route: 058
  2. ADALIMUMAB [Suspect]
     Active Substance: ADALIMUMAB
     Indication: Product used for unknown indication
     Dosage: 40 MILLIGRAM (SOLUTION FOR INJECTION)
     Route: 058
  3. ADALIMUMAB [Suspect]
     Active Substance: ADALIMUMAB
     Dosage: UNK (SOLUTION FOR INJECTION)
     Route: 065
  4. ADALIMUMAB [Suspect]
     Active Substance: ADALIMUMAB
     Dosage: UNK (SOLUTION FOR INJECTION)
     Route: 040
  5. ADALIMUMAB [Suspect]
     Active Substance: ADALIMUMAB
     Dosage: 40 MILLIGRAM (SOLUTION FOR INJECTION)
     Route: 040
  6. ADALIMUMAB [Suspect]
     Active Substance: ADALIMUMAB
     Dosage: 40 MILLIGRAM, QWEEK (SOLUTION FOR INJECTION)
     Route: 065
  7. ADALIMUMAB [Suspect]
     Active Substance: ADALIMUMAB
     Dosage: 40 MILLIGRAM 1 EVERY 2 MONTHS (SOLUTION SUBCUTANEOUS)
     Route: 058
  8. ALENDRONIC ACID [Suspect]
     Active Substance: ALENDRONIC ACID
     Indication: Rheumatoid arthritis
     Dosage: UNK
     Route: 016
  9. ALENDRONIC ACID [Suspect]
     Active Substance: ALENDRONIC ACID
     Indication: Product used for unknown indication
     Dosage: UNK
     Route: 065
  10. ALENDRONIC ACID [Suspect]
     Active Substance: ALENDRONIC ACID
     Dosage: UNK
     Route: 048
  11. DICLOFENAC SODIUM [Suspect]
     Active Substance: DICLOFENAC SODIUM
     Indication: Product used for unknown indication
     Dosage: UNK
     Route: 058
  12. DICLOFENAC SODIUM [Suspect]
     Active Substance: DICLOFENAC SODIUM
     Dosage: 50 MILLIGRAM
     Route: 065
  13. DICLOFENAC SODIUM [Suspect]
     Active Substance: DICLOFENAC SODIUM
     Dosage: UNK
     Route: 065
  14. AIMOVIG [Suspect]
     Active Substance: ERENUMAB-AOOE
     Indication: Migraine
     Dosage: UNK
     Route: 065
  15. ERELZI [Suspect]
     Active Substance: ETANERCEPT-SZZS
     Indication: Rheumatoid arthritis
     Dosage: 50 MILLIGRAM, QWEEK
     Route: 058
  16. ERELZI [Suspect]
     Active Substance: ETANERCEPT-SZZS
     Indication: Product used for unknown indication
     Dosage: UNK
     Route: 065
  17. ERELZI [Suspect]
     Active Substance: ETANERCEPT-SZZS
     Dosage: UNK
     Route: 058
  18. DICLOFENAC [Suspect]
     Active Substance: DICLOFENAC
     Indication: Product used for unknown indication
     Dosage: 50 MILLIGRAM
     Route: 058
  19. DICLOFENAC [Suspect]
     Active Substance: DICLOFENAC
     Dosage: UNK
     Route: 058
  20. CANDESARTAN [Suspect]
     Active Substance: CANDESARTAN
     Indication: Rheumatoid arthritis
     Dosage: UNK
     Route: 065
  21. CANDESARTAN [Suspect]
     Active Substance: CANDESARTAN
     Indication: Migraine
     Dosage: UNK
     Route: 048

REACTIONS (61)
  - Type 2 diabetes mellitus [Fatal]
  - Infusion related reaction [Fatal]
  - Asthenia [Fatal]
  - Joint range of motion decreased [Fatal]
  - Vomiting [Fatal]
  - Arthropathy [Fatal]
  - Glossodynia [Fatal]
  - Grip strength decreased [Fatal]
  - Drug hypersensitivity [Fatal]
  - Dizziness [Fatal]
  - Hepatitis [Fatal]
  - Blood cholesterol increased [Fatal]
  - Liver function test increased [Fatal]
  - Wound [Fatal]
  - Injection site reaction [Fatal]
  - Fatigue [Fatal]
  - Joint swelling [Fatal]
  - Night sweats [Fatal]
  - Adverse reaction [Fatal]
  - Insomnia [Fatal]
  - Abdominal pain upper [Fatal]
  - Malaise [Fatal]
  - Muscular weakness [Fatal]
  - Gastrooesophageal reflux disease [Fatal]
  - Muscle spasms [Fatal]
  - Gastrointestinal disorder [Fatal]
  - Rash [Fatal]
  - Gait inability [Fatal]
  - Rheumatoid arthritis [Fatal]
  - Hypersensitivity [Fatal]
  - Coeliac disease [Fatal]
  - Musculoskeletal stiffness [Fatal]
  - Nausea [Fatal]
  - Contusion [Fatal]
  - Obesity [Fatal]
  - Dyspepsia [Fatal]
  - Weight increased [Fatal]
  - Drug-induced liver injury [Fatal]
  - Hypertension [Fatal]
  - Swelling [Fatal]
  - Facet joint syndrome [Fatal]
  - Neck pain [Fatal]
  - Psoriatic arthropathy [Fatal]
  - Blister [Fatal]
  - Drug intolerance [Fatal]
  - Confusional state [Fatal]
  - Depression [Fatal]
  - Hand deformity [Fatal]
  - Osteoarthritis [Fatal]
  - Lung disorder [Fatal]
  - Breast cancer stage III [Fatal]
  - Helicobacter infection [Fatal]
  - Folliculitis [Fatal]
  - Wound infection [Fatal]
  - Underdose [Fatal]
  - Exposure during pregnancy [Fatal]
  - Maternal exposure during pregnancy [Fatal]
  - Treatment failure [Fatal]
  - Drug ineffective [Fatal]
  - Intentional product use issue [Fatal]
  - Off label use [Fatal]
